FAERS Safety Report 6347769-7 (Version None)
Quarter: 2009Q3

REPORT INFORMATION
  Report Type: 
  Country: None (occurrence: None)
  Receive Date: 20090910
  Receipt Date: 20090908
  Transmission Date: 20100115
  Serious: Yes (Other)
  Sender: FDA-Public Use
  Company Number: A0806137A

PATIENT
  Age: 81 Year
  Sex: Female
  Weight: 75 kg

DRUGS (8)
  1. AVODART [Suspect]
     Indication: DRUG USE FOR UNKNOWN INDICATION
     Dosage: .5MG PER DAY
     Route: 048
  2. AMBROTOSE [Concomitant]
  3. CALCIUM [Concomitant]
  4. PANTALOC [Concomitant]
  5. PREDNISONE TAB [Concomitant]
  6. RESTORIL [Concomitant]
  7. VITAMIN D [Concomitant]
  8. WELLBUTRIN [Concomitant]

REACTIONS (2)
  - HAEMOGLOBIN [None]
  - INCREASED TENDENCY TO BRUISE [None]
